FAERS Safety Report 22684496 (Version 9)
Quarter: 2024Q3

REPORT INFORMATION
  Report Type: Spontaneous
  Country: US (occurrence: US)
  Receive Date: 20230710
  Receipt Date: 20240708
  Transmission Date: 20241017
  Serious: Yes (Other)
  Sender: CSL BEHRING
  Company Number: US-BEH-2023160635

PATIENT
  Age: 20 Year
  Sex: Male
  Weight: 86.7 kg

DRUGS (6)
  1. HEMGENIX [Suspect]
     Active Substance: ETRANACOGENE DEZAPARVOVEC
     Indication: Factor IX deficiency
     Dosage: ONE TIME INFUSION, SINGLE
     Route: 042
     Dates: start: 20230619, end: 20230619
  2. HEMGENIX [Suspect]
     Active Substance: ETRANACOGENE DEZAPARVOVEC
     Dosage: UNK
     Route: 042
     Dates: start: 20230619, end: 20230619
  3. HEMGENIX [Suspect]
     Active Substance: ETRANACOGENE DEZAPARVOVEC
     Dosage: UNK
     Route: 042
     Dates: start: 20230619, end: 20230619
  4. HEMGENIX [Suspect]
     Active Substance: ETRANACOGENE DEZAPARVOVEC
     Dosage: UNK
     Route: 065
     Dates: start: 20230912
  5. VALERIAN [Suspect]
     Active Substance: VALERIAN
     Indication: Sleep disorder
     Route: 065
  6. ALPROLIX [Concomitant]
     Active Substance: EFTRENONACOG ALFA
     Dosage: 8256 INTERNATIONAL UNIT
     Dates: start: 20230626, end: 202306

REACTIONS (14)
  - Alanine aminotransferase increased [Recovered/Resolved]
  - Chills [Recovered/Resolved]
  - Headache [Recovered/Resolved]
  - Feeling hot [Recovered/Resolved]
  - Fatigue [Recovered/Resolved]
  - Malaise [Recovered/Resolved]
  - Aspartate aminotransferase increased [Recovered/Resolved]
  - Alanine aminotransferase increased [Recovered/Resolved]
  - Hepatic enzyme increased [Recovered/Resolved]
  - Limb injury [Recovered/Resolved]
  - Contusion [Recovered/Resolved]
  - Swelling [Recovered/Resolved]
  - Hepatic enzyme increased [Recovered/Resolved]
  - Aspartate aminotransferase increased [Recovered/Resolved]

NARRATIVE: CASE EVENT DATE: 20230101
